FAERS Safety Report 8534192 (Version 3)
Quarter: 2013Q3

REPORT INFORMATION
  Report Type: Spontaneous
  Country: FR (occurrence: FR)
  Receive Date: 20120427
  Receipt Date: 20130909
  Transmission Date: 20140515
  Serious: Yes (Hospitalization)
  Sender: FDA-Public Use
  Company Number: FR-GLAXOSMITHKLINE-B0795857A

PATIENT
  Age: 15 Year
  Sex: Female

DRUGS (6)
  1. ZOPHREN [Suspect]
     Indication: ANTIEMETIC SUPPORTIVE CARE
     Route: 048
     Dates: start: 20120110, end: 20120110
  2. TAXOTERE [Suspect]
     Indication: GERM CELL CANCER
     Dosage: 150MG PER DAY
     Route: 042
     Dates: start: 20120110, end: 20120110
  3. GEMZAR [Suspect]
     Indication: GERM CELL CANCER
     Dosage: 1100MG PER DAY
     Route: 042
     Dates: start: 20120110, end: 20120110
  4. ATARAX [Suspect]
     Indication: PREMEDICATION
     Dosage: 50MG PER DAY
     Route: 048
     Dates: start: 20120110, end: 20120110
  5. SOLUMEDROL [Suspect]
     Indication: PREMEDICATION
     Dosage: 60MG PER DAY
     Route: 042
     Dates: start: 20120110, end: 20120110
  6. PLITICAN [Suspect]
     Indication: ANTIEMETIC SUPPORTIVE CARE
     Route: 042
     Dates: start: 20120110, end: 20120110

REACTIONS (4)
  - Erythema [Recovered/Resolved]
  - Arthralgia [Recovered/Resolved]
  - Purpura [Recovered/Resolved]
  - Palmar-plantar erythrodysaesthesia syndrome [Recovered/Resolved]
